FAERS Safety Report 11255739 (Version 1)
Quarter: 2015Q3

REPORT INFORMATION
  Report Type: Spontaneous
  Country: BR (occurrence: BR)
  Receive Date: 20150709
  Receipt Date: 20150709
  Transmission Date: 20151125
  Serious: Yes (Other)
  Sender: FDA-Public Use
  Company Number: BR-SA-2015SA098143

PATIENT
  Age: 59 Year
  Sex: Male

DRUGS (1)
  1. STILNOX [Suspect]
     Active Substance: ZOLPIDEM TARTRATE
     Indication: SLEEP DISORDER
     Route: 065

REACTIONS (1)
  - Seizure [Unknown]
